FAERS Safety Report 10579501 (Version 2)
Quarter: 2014Q4

REPORT INFORMATION
  Report Type: Spontaneous
  Country: US (occurrence: US)
  Receive Date: 20141112
  Receipt Date: 20141118
  Transmission Date: 20150529
  Serious: Yes (Hospitalization)
  Sender: FDA-Public Use
  Company Number: US-BAYER-2014-165294

PATIENT
  Age: 33 Year
  Sex: Female
  Weight: 78.5 kg

DRUGS (4)
  1. ALBUTEROL. [Concomitant]
     Active Substance: ALBUTEROL
     Indication: ASTHMA
     Dosage: UNK
     Dates: start: 2000
  2. FLOVENT [Concomitant]
     Active Substance: FLUTICASONE PROPIONATE
     Indication: ASTHMA
     Dosage: UNK
     Dates: start: 201009
  3. MIRENA [Suspect]
     Active Substance: LEVONORGESTREL
     Indication: CONTRACEPTION
     Dosage: 20 MCG/24HR, CONT
     Route: 015
     Dates: start: 20110829, end: 20130104
  4. DICLOXACILLIN [Concomitant]
     Active Substance: DICLOXACILLIN
     Indication: INFECTED DERMAL CYST

REACTIONS (6)
  - Device dislocation [None]
  - Injury [None]
  - Device difficult to use [None]
  - Device dislocation [None]
  - Pain [None]
  - Emotional distress [None]

NARRATIVE: CASE EVENT DATE: 20121212
